FAERS Safety Report 11557439 (Version 1)
Quarter: 2015Q3

REPORT INFORMATION
  Report Type: Spontaneous
  Country: DE (occurrence: DE)
  Receive Date: 20150925
  Receipt Date: 20150925
  Transmission Date: 20151125
  Serious: Yes (Hospitalization, Other)
  Sender: FDA-Public Use
  Company Number: DE-UCBSA-2015030217

PATIENT
  Age: 60 Year
  Sex: Female
  Weight: 70 kg

DRUGS (5)
  1. PLANUM [Suspect]
     Active Substance: DESOGESTREL\ETHINYL ESTRADIOL
     Indication: PRODUCT USED FOR UNKNOWN INDICATION
     Dosage: STRENGTH:20,3 TABLETS, QUESTIONABLE
     Route: 048
     Dates: start: 20150920, end: 20150920
  2. VENLAFAXINE [Suspect]
     Active Substance: VENLAFAXINE HYDROCHLORIDE
     Indication: PRODUCT USED FOR UNKNOWN INDICATION
     Dosage: STRENGTH:150 MG, UNKNOWN AMOUNT OF THERAPEUTIC DOSAGE.
     Route: 048
     Dates: start: 20150920, end: 20150920
  3. PROTHIPENDYL [Suspect]
     Active Substance: PROTHIPENDYL
     Indication: PRODUCT USED FOR UNKNOWN INDICATION
     Dosage: STRENGTH:80, 6 TABLETS, QUESTIONABLE
     Route: 048
     Dates: start: 20150920, end: 20150920
  4. KEPPRA [Suspect]
     Active Substance: LEVETIRACETAM
     Indication: PRODUCT USED FOR UNKNOWN INDICATION
     Dosage: STRENGTH:500, UNKNOWN AMOUNT OF THERAPEUTIC DOSAGE
     Route: 048
     Dates: start: 20150920, end: 20150920
  5. TAVOR [Suspect]
     Active Substance: LORAZEPAM
     Indication: PRODUCT USED FOR UNKNOWN INDICATION
     Dosage: UNKNOWN AMOUNT OF THERAPEUTIC DOSAGE
     Route: 048
     Dates: start: 20150920, end: 20150920

REACTIONS (5)
  - Sopor [Unknown]
  - Hypotension [Unknown]
  - Diastolic hypotension [Unknown]
  - Electrocardiogram QT prolonged [Unknown]
  - Suicide attempt [Unknown]

NARRATIVE: CASE EVENT DATE: 20150920
